FAERS Safety Report 9204969 (Version 8)
Quarter: 2014Q2

REPORT INFORMATION
  Report Type: Report from Study
  Country: GB (occurrence: GB)
  Receive Date: 20130402
  Receipt Date: 20140415
  Transmission Date: 20141212
  Serious: Yes (Hospitalization)
  Sender: FDA-Public Use
  Company Number: GB-ROCHE-1204179

PATIENT
  Age: 61 Year
  Sex: Male
  Weight: 53.9 kg

DRUGS (14)
  1. TRASTUZUMAB EMTANSINE [Suspect]
     Indication: GASTRIC CANCER
     Dosage: DATE OF MOST RECENT DOSE PRIOR TO THE SERIOUS ADVERSE EVENT WAS 25/FEB/2013 AT A DOSE OF 140MG.
     Route: 042
     Dates: start: 20130204
  2. OMEPRAZOLE [Concomitant]
     Indication: DYSPEPSIA
     Route: 065
     Dates: start: 20110202
  3. LOSARTAN [Concomitant]
     Indication: HYPERTENSION
     Route: 065
     Dates: start: 20130311
  4. PARACETAMOL [Concomitant]
     Indication: BACK PAIN
  5. PARACETAMOL [Concomitant]
     Indication: ABDOMINAL PAIN UPPER
  6. METOCLOPRAMIDE [Concomitant]
     Indication: NAUSEA
     Route: 065
     Dates: start: 20130204, end: 20130208
  7. BENDROFLUMETHIAZIDE [Concomitant]
     Indication: HYPERTENSION
     Route: 065
     Dates: start: 20130128, end: 20130225
  8. NIOPAM [Concomitant]
     Route: 065
     Dates: start: 20130128, end: 20130128
  9. NIOPAM [Concomitant]
     Route: 065
     Dates: start: 20130321, end: 20130321
  10. GASTROGRAFIN [Concomitant]
     Route: 065
     Dates: start: 20130128, end: 20130128
  11. GASTROGRAFIN [Concomitant]
     Route: 065
     Dates: start: 20130321, end: 20130321
  12. AMOXICILLIN [Concomitant]
     Indication: CELLULITIS
     Route: 065
     Dates: start: 20130304, end: 20130310
  13. GAVISCON ADVANCE (UNITED KINGDOM) [Concomitant]
     Indication: DYSPEPSIA
     Route: 065
     Dates: start: 201303
  14. POTASSIUM SULFATE [Concomitant]
     Indication: HYPOKALAEMIA
     Route: 065
     Dates: start: 20130218, end: 20130218

REACTIONS (2)
  - Blood creatinine increased [Recovered/Resolved]
  - Diarrhoea [Recovered/Resolved]
